FAERS Safety Report 26157979 (Version 1)
Quarter: 2025Q4

REPORT INFORMATION
  Report Type: Spontaneous
  Country: US (occurrence: None)
  Receive Date: 20251215
  Receipt Date: 20251215
  Transmission Date: 20260118
  Serious: Yes (Death)
  Sender: FDA-CTU
  Company Number: None

PATIENT
  Age: 71 Year
  Sex: Male

DRUGS (1)
  1. COSENTYX [Suspect]
     Active Substance: SECUKINUMAB
     Indication: Psoriasis
     Dosage: INJECTE 300MG (2 PENS) SUBCUTANEOUSLY ONCE  A WEEK FOR 5 WEEKS AS DIRECTED
     Route: 058
     Dates: start: 20250221

REACTIONS (1)
  - Death [None]

NARRATIVE: CASE EVENT DATE: 20251212
